FAERS Safety Report 7034460-7 (Version None)
Quarter: 2010Q4

REPORT INFORMATION
  Report Type: 
  Country: None (occurrence: None)
  Receive Date: 20101008
  Receipt Date: 20100929
  Transmission Date: 20110411
  Serious: Yes (Hospitalization, Other)
  Sender: FDA-Public Use
  Company Number: US-JNJFOC-20100904914

PATIENT
  Sex: Female

DRUGS (5)
  1. REMICADE [Suspect]
     Indication: CROHN'S DISEASE
     Route: 042
  2. REMICADE [Suspect]
     Dosage: 3 INFUSION AT 5 MG/KG
     Route: 042
  3. REMICADE [Suspect]
     Route: 042
  4. ZANTAC [Concomitant]
  5. VITAMIN B-12 [Concomitant]

REACTIONS (4)
  - DRUG EFFECT DECREASED [None]
  - ILEOCOLECTOMY [None]
  - OPTIC NEURITIS [None]
  - VISION BLURRED [None]
